FAERS Safety Report 5191711-1 (Version None)
Quarter: 2006Q4

REPORT INFORMATION
  Report Type: 
  Country: None (occurrence: None)
  Receive Date: 20061219
  Receipt Date: 20061211
  Transmission Date: 20070319
  Serious: Yes (Hospitalization)
  Sender: FDA-Public Use
  Company Number: US-2006-023811

PATIENT
  Age: 26 Year
  Sex: Female
  Weight: 88 kg

DRUGS (1)
  1. YAZ [Suspect]
     Indication: ORAL CONTRACEPTION
     Dosage: 1 TAB(S), 1X/DAY, ORAL
     Route: 048
     Dates: start: 20060601, end: 20060815

REACTIONS (4)
  - ANXIETY DISORDER [None]
  - GLUCOSE URINE PRESENT [None]
  - LOSS OF CONSCIOUSNESS [None]
  - PANIC ATTACK [None]
